FAERS Safety Report 19290907 (Version 2)
Quarter: 2021Q4

REPORT INFORMATION
  Report Type: Spontaneous
  Country: US (occurrence: US)
  Receive Date: 20210523
  Receipt Date: 20211102
  Transmission Date: 20220303
  Serious: Yes (Other)
  Sender: FDA-Public Use
  Company Number: US-CELGENE-USA-20210504407

PATIENT
  Sex: Female

DRUGS (9)
  1. THALOMID [Suspect]
     Active Substance: THALIDOMIDE
     Indication: Leprosy
     Dosage: 100 MILLIGRAM
     Route: 048
     Dates: start: 201201
  2. THALOMID [Suspect]
     Active Substance: THALIDOMIDE
     Indication: Off label use
     Dosage: 300-100 MG
     Route: 048
     Dates: start: 201206
  3. THALOMID [Suspect]
     Active Substance: THALIDOMIDE
     Dosage: 400- 300 MG
     Route: 048
     Dates: start: 201403
  4. THALOMID [Suspect]
     Active Substance: THALIDOMIDE
     Dosage: 100-400 MG
     Route: 048
     Dates: start: 201506
  5. THALOMID [Suspect]
     Active Substance: THALIDOMIDE
     Dosage: 350-300 MG
     Route: 048
     Dates: start: 201707
  6. THALOMID [Suspect]
     Active Substance: THALIDOMIDE
     Dosage: 250-200MG
     Route: 048
     Dates: start: 201905
  7. THALOMID [Suspect]
     Active Substance: THALIDOMIDE
     Dosage: 150-100 MG
     Route: 048
     Dates: start: 201911
  8. THALOMID [Suspect]
     Active Substance: THALIDOMIDE
     Dosage: 50 MILLIGRAM
     Route: 048
     Dates: start: 202007
  9. THALOMID [Suspect]
     Active Substance: THALIDOMIDE
     Dosage: 50 MILLIGRAM
     Route: 048
     Dates: start: 202008

REACTIONS (2)
  - Neuropathy peripheral [Not Recovered/Not Resolved]
  - Breast mass [Unknown]
